APPROVED DRUG PRODUCT: PIRFENIDONE
Active Ingredient: PIRFENIDONE
Strength: 801MG
Dosage Form/Route: TABLET;ORAL
Application: A212560 | Product #002 | TE Code: AB
Applicant: SANDOZ INC
Approved: Apr 28, 2022 | RLD: No | RS: No | Type: RX